FAERS Safety Report 14462322 (Version 1)
Quarter: 2018Q1

REPORT INFORMATION
  Report Type: Spontaneous
  Country: US (occurrence: US)
  Receive Date: 20180130
  Receipt Date: 20180130
  Transmission Date: 20180509
  Serious: No
  Sender: FDA-Public Use
  Company Number: US-BAUSCH-BL-2017-026973

PATIENT
  Sex: Female
  Weight: 65.83 kg

DRUGS (1)
  1. DIHYDROERGOTAMINE MESYLATE. [Suspect]
     Active Substance: DIHYDROERGOTAMINE MESYLATE
     Indication: MIGRAINE
     Dosage: 1 SPRAY IN EACH NOSTRIL, REPEAT IN 15 MINUTES, AND REPEAT AT 2 HOURS
     Route: 045

REACTIONS (3)
  - Product container issue [Unknown]
  - Underdose [Unknown]
  - Drug effect incomplete [Unknown]
